FAERS Safety Report 19706939 (Version 1)
Quarter: 2021Q3

REPORT INFORMATION
  Report Type: Spontaneous
  Country: US (occurrence: US)
  Receive Date: 20210816
  Receipt Date: 20210816
  Transmission Date: 20211014
  Serious: Yes (Hospitalization)
  Sender: FDA-Public Use
  Company Number: None

PATIENT
  Age: 80 Year
  Sex: Male
  Weight: 85.28 kg

DRUGS (1)
  1. DIPYRIDAMOLE (DIPYRIDAMOLE 5MG/ML INJ) [Suspect]
     Active Substance: DIPYRIDAMOLE
     Indication: CARDIAC STRESS TEST
     Dosage: ?          OTHER ROUTE:IV?
     Dates: start: 20210510, end: 20210510

REACTIONS (11)
  - Heart rate decreased [None]
  - Atrioventricular block first degree [None]
  - Depressed level of consciousness [None]
  - Atrioventricular block second degree [None]
  - Blood pressure immeasurable [None]
  - Infusion related reaction [None]
  - Supraventricular extrasystoles [None]
  - Electrocardiogram ST segment depression [None]
  - Hypotension [None]
  - Sinus bradycardia [None]
  - Electrocardiogram T wave inversion [None]

NARRATIVE: CASE EVENT DATE: 20210510
